FAERS Safety Report 13767264 (Version 1)
Quarter: 2017Q3

REPORT INFORMATION
  Report Type: Spontaneous
  Country: US (occurrence: US)
  Receive Date: 20170719
  Receipt Date: 20170719
  Transmission Date: 20171127
  Serious: No
  Sender: FDA-Public Use
  Company Number: US-ASTRAZENECA-2017SE73843

PATIENT
  Sex: Female

DRUGS (4)
  1. SEROQUEL XR [Suspect]
     Active Substance: QUETIAPINE FUMARATE
     Indication: BIPOLAR DISORDER
     Route: 048
     Dates: start: 2009
  2. DEPAKOTE [Concomitant]
     Active Substance: DIVALPROEX SODIUM
     Indication: SEIZURE
     Route: 065
  3. SEROQUEL XR [Suspect]
     Active Substance: QUETIAPINE FUMARATE
     Indication: BIPOLAR DISORDER
     Route: 048
     Dates: start: 20170613
  4. TRAZODONE [Concomitant]
     Active Substance: TRAZODONE HYDROCHLORIDE
     Route: 065

REACTIONS (7)
  - Vomiting [Unknown]
  - Hyperchlorhydria [Unknown]
  - Kidney infection [Not Recovered/Not Resolved]
  - Decreased appetite [Unknown]
  - Flatulence [Unknown]
  - Malaise [Unknown]
  - Abdominal distension [Unknown]

NARRATIVE: CASE EVENT DATE: 201706
